FAERS Safety Report 7571858-2 (Version None)
Quarter: 2011Q2

REPORT INFORMATION
  Report Type: 
  Country: None (occurrence: None)
  Receive Date: 20110624
  Receipt Date: 20100628
  Transmission Date: 20111010
  Serious: No
  Sender: FDA-Public Use
  Company Number: A0848669A

PATIENT
  Age: 45 Year
  Sex: Male

DRUGS (7)
  1. XYLOL [Concomitant]
  2. ASACOL [Concomitant]
  3. VERAMYST [Suspect]
     Indication: MULTIPLE ALLERGIES
     Dosage: 2SPR PER DAY
     Route: 045
     Dates: start: 20090101
  4. ANTI-CHOLESTEROL MEDICATION [Concomitant]
  5. ASPIRIN [Concomitant]
  6. ALLERGY MEDICATION [Concomitant]
  7. ALLERGY SHOTS [Concomitant]

REACTIONS (6)
  - PRODUCT QUALITY ISSUE [None]
  - FEELING ABNORMAL [None]
  - NASAL DISCOMFORT [None]
  - PSYCHOMOTOR HYPERACTIVITY [None]
  - MALAISE [None]
  - SINUSITIS [None]
